FAERS Safety Report 4686278-8 (Version None)
Quarter: 2005Q2

REPORT INFORMATION
  Report Type: 
  Country: None (occurrence: None)
  Receive Date: 20050606
  Receipt Date: 20050523
  Transmission Date: 20051028
  Serious: Yes (Other)
  Sender: FDA-Public Use
  Company Number: 214938

PATIENT
  Age: 62 Year
  Sex: Male

DRUGS (4)
  1. AVASTIN [Suspect]
     Indication: RENAL CELL CARCINOMA STAGE UNSPECIFIED
     Dosage: INTRAVENOUS
     Route: 042
     Dates: start: 20050215
  2. ZOMETA [Suspect]
  3. OMEPRAZOLE [Concomitant]
  4. INTERFERON                    (INTERFERON) [Concomitant]

REACTIONS (1)
  - RENAL FAILURE ACUTE [None]
